FAERS Safety Report 5938082-8 (Version None)
Quarter: 2008Q4

REPORT INFORMATION
  Report Type: 
  Country: None (occurrence: None)
  Receive Date: 20081031
  Receipt Date: 20081023
  Transmission Date: 20090506
  Serious: Yes (Hospitalization)
  Sender: FDA-Public Use
  Company Number: PHHY2008MX25864

PATIENT
  Age: 24 Year
  Sex: Male

DRUGS (2)
  1. TEGRETOL 400 LC [Suspect]
     Indication: EPILEPSY
     Dosage: 1 TABLET PER DAY
     Route: 048
     Dates: start: 20040601, end: 20081001
  2. TEGRETOL 400 LC [Suspect]
     Dosage: 400 MG 2 TABS PER DAY
     Route: 048
     Dates: start: 20081001

REACTIONS (4)
  - ASTHENIA [None]
  - CONVULSION [None]
  - FATIGUE [None]
  - INFLUENZA [None]
